FAERS Safety Report 5833676-2 (Version None)
Quarter: 2008Q3

REPORT INFORMATION
  Report Type: 
  Country: None (occurrence: None)
  Receive Date: 20080805
  Receipt Date: 20080728
  Transmission Date: 20090109
  Serious: Yes (Disabling, Other)
  Sender: FDA-Public Use
  Company Number: AU-ASTRAZENECA-2008AP04781

PATIENT
  Age: 67 Year
  Sex: Male
  Weight: 85.9 kg

DRUGS (1)
  1. ZOLADEX [Suspect]
     Indication: PROSTATE CANCER
     Route: 058
     Dates: start: 20080307

REACTIONS (12)
  - ASTHENIA [None]
  - CHILLS [None]
  - CONFUSIONAL STATE [None]
  - DEPRESSION [None]
  - EMOTIONAL DISORDER [None]
  - HOT FLUSH [None]
  - HYPOGONADISM [None]
  - MUSCLE TWITCHING [None]
  - NIGHTMARE [None]
  - NIPPLE PAIN [None]
  - PUBIC PAIN [None]
  - VISUAL IMPAIRMENT [None]
